FAERS Safety Report 23995205 (Version 1)
Quarter: 2024Q2

REPORT INFORMATION
  Report Type: Spontaneous
  Country: DE (occurrence: DE)
  Receive Date: 20240620
  Receipt Date: 20240620
  Transmission Date: 20240716
  Serious: Yes (Other)
  Sender: FDA-Public Use
  Company Number: DE-SA-2024SA180012

PATIENT
  Age: 67 Year
  Sex: Female

DRUGS (5)
  1. LEFLUNOMIDE [Suspect]
     Active Substance: LEFLUNOMIDE
     Indication: Rheumatoid arthritis
     Dosage: 20 MG, QD
     Dates: start: 202104
  2. LEFLUNOMIDE [Suspect]
     Active Substance: LEFLUNOMIDE
     Indication: Psoriatic arthropathy
  3. UPADACITINIB [Suspect]
     Active Substance: UPADACITINIB
     Indication: Rheumatoid arthritis
     Dosage: QD
     Dates: start: 202110
  4. UPADACITINIB [Suspect]
     Active Substance: UPADACITINIB
     Indication: Psoriatic arthropathy
  5. STELARA [Concomitant]
     Active Substance: USTEKINUMAB
     Dosage: 90 MG, Q12W
     Route: 058
     Dates: start: 202104

REACTIONS (7)
  - Leukopenia [Unknown]
  - Nausea [Unknown]
  - Vomiting [Unknown]
  - Diarrhoea [Unknown]
  - Drug intolerance [Unknown]
  - Sensory disturbance [Unknown]
  - Drug ineffective [Unknown]

NARRATIVE: CASE EVENT DATE: 20210401
